FAERS Safety Report 9468668 (Version 2)
Quarter: 2013Q3

REPORT INFORMATION
  Report Type: Spontaneous
  Country: US (occurrence: None)
  Receive Date: 20130814
  Receipt Date: 20130821
  Transmission Date: 20140515
  Serious: Yes (Life-Threatening, Hospitalization)
  Sender: FDA-Public Use
  Company Number: AUR-APL-2013-06628

PATIENT
  Age: 56 Year
  Sex: Female

DRUGS (4)
  1. LEVOFLOXACIN [Suspect]
     Indication: PNEUMONIA
     Route: 048
  2. METFORMIN (METFORMIN) [Concomitant]
  3. OMEPRAZOLE [Concomitant]
  4. LEVOTHYROXINE [Concomitant]

REACTIONS (9)
  - Unresponsive to stimuli [None]
  - Hypoglycaemia [None]
  - Renal failure [None]
  - Glycosylated haemoglobin increased [None]
  - Blood insulin increased [None]
  - Insulin-like growth factor increased [None]
  - Insulin C-peptide increased [None]
  - Somnolence [None]
  - Diverticulum intestinal [None]
